FAERS Safety Report 24555514 (Version 1)
Quarter: 2024Q4

REPORT INFORMATION
  Report Type: Spontaneous
  Country: DE (occurrence: DE)
  Receive Date: 20241028
  Receipt Date: 20241028
  Transmission Date: 20250114
  Serious: Yes (Other)
  Sender: TAKEDA
  Company Number: DE-TAKEDA-2024TUS106327

PATIENT

DRUGS (1)
  1. LISDEXAMFETAMINE DIMESYLATE [Suspect]
     Active Substance: LISDEXAMFETAMINE DIMESYLATE
     Indication: Product used for unknown indication
     Dosage: UNK
     Route: 065

REACTIONS (7)
  - Nasal inflammation [Unknown]
  - Tongue discomfort [Unknown]
  - Balance disorder [Unknown]
  - Sleep disorder [Unknown]
  - Nasal obstruction [Unknown]
  - Dyspnoea [Unknown]
  - Dysgeusia [Unknown]
